FAERS Safety Report 13784197 (Version 4)
Quarter: 2018Q1

REPORT INFORMATION
  Report Type: Report from Study
  Country: ES (occurrence: ES)
  Receive Date: 20170724
  Receipt Date: 20180202
  Transmission Date: 20180508
  Serious: Yes (Hospitalization)
  Sender: FDA-Public Use
  Company Number: ES-EXELIXIS-XL18417008924

PATIENT
  Age: 78 Year
  Sex: Male
  Weight: 66.3 kg

DRUGS (12)
  1. XL184 [Suspect]
     Active Substance: CABOZANTINIB
     Indication: HEPATOCELLULAR CARCINOMA
     Dosage: 60 MG, QD
     Route: 048
     Dates: start: 20170127, end: 20170415
  2. BOI-K ASPARTICO [Concomitant]
     Active Substance: ASPARTIC ACID\POTASSIUM ASCORBATE
  3. MAGNESIUM [Concomitant]
     Active Substance: MAGNESIUM
  4. NOLOTIL (METAMIZOLE MAGNESIUM) [Concomitant]
     Active Substance: METAMIZOLE MAGNESIUM
  5. AMLODIPINE [Concomitant]
     Active Substance: AMLODIPINE BESYLATE
     Indication: HYPERTENSION
  6. PHOSPHATE [Concomitant]
     Active Substance: UNSPECIFIED INGREDIENT
  7. PARACETAMOL [Concomitant]
     Active Substance: ACETAMINOPHEN
  8. XL184 [Suspect]
     Active Substance: CABOZANTINIB
     Dosage: UNK
  9. EUTIROX [Concomitant]
     Active Substance: LEVOTHYROXINE SODIUM
  10. LOSARTAN AND HYDROCHLOROTHIAZIDE [Concomitant]
     Active Substance: HYDROCHLOROTHIAZIDE\LOSARTAN POTASSIUM
     Indication: HYPERTENSION
  11. TAMSULOSIN [Concomitant]
     Active Substance: TAMSULOSIN
  12. COROPRES [Concomitant]
     Active Substance: CARVEDILOL

REACTIONS (1)
  - Blindness transient [Recovered/Resolved with Sequelae]

NARRATIVE: CASE EVENT DATE: 20170416
